FAERS Safety Report 10483147 (Version 1)
Quarter: 2014Q3

REPORT INFORMATION
  Report Type: Report from Study
  Country: GB (occurrence: GB)
  Receive Date: 20140930
  Receipt Date: 20140930
  Transmission Date: 20150326
  Serious: Yes (Other)
  Sender: FDA-Public Use
  Company Number: GB-AMGEN-GBRSP2014073117

PATIENT
  Sex: Female
  Weight: 88 kg

DRUGS (1)
  1. PROLIA [Suspect]
     Active Substance: DENOSUMAB
     Indication: OSTEOPOROSIS POSTMENOPAUSAL
     Route: 065

REACTIONS (5)
  - Angina pectoris [Unknown]
  - Body height decreased [Unknown]
  - Obesity [Unknown]
  - Hyperlipidaemia [Unknown]
  - Bone density decreased [Unknown]
